FAERS Safety Report 20852650 (Version 1)
Quarter: 2022Q2

REPORT INFORMATION
  Report Type: Spontaneous
  Country: CN (occurrence: CN)
  Receive Date: 20220520
  Receipt Date: 20220520
  Transmission Date: 20220720
  Serious: Yes (Death, Hospitalization)
  Sender: FDA-Public Use
  Company Number: CN-STRIDES ARCOLAB LIMITED-2022SP005780

PATIENT
  Age: 75 Year
  Sex: Female

DRUGS (1)
  1. PREDNISOLONE [Suspect]
     Active Substance: PREDNISOLONE
     Indication: Sjogren^s syndrome
     Dosage: UNK
     Route: 048

REACTIONS (3)
  - Cryptococcosis [Fatal]
  - Cryptococcal fungaemia [Fatal]
  - Cardiac failure [Fatal]
